FAERS Safety Report 4350116-3 (Version None)
Quarter: 2004Q2

REPORT INFORMATION
  Report Type: 
  Country: None (occurrence: None)
  Receive Date: 20040429
  Receipt Date: 20021104
  Transmission Date: 20050107
  Serious: Yes (Hospitalization)
  Sender: FDA-Public Use
  Company Number: GB-ROCHE-324953

PATIENT
  Age: 16 Year
  Sex: Female

DRUGS (6)
  1. MIDAZOLAM HYDROCHLORIDE [Suspect]
     Indication: ANAESTHESIA
     Dosage: REGIMEN REPORTED AS ONCE.
     Route: 013
  2. PROPOFOL [Suspect]
     Dosage: REGIMEN REPORTED AS ONCE.
     Route: 013
  3. METOCLOPRAMIDE [Suspect]
     Dosage: REGIMEN REPORTED AS ONCE.
     Route: 013
  4. PETHIDINE [Suspect]
     Dosage: REGIMEN REPORTED AS ONCE.
     Route: 013
  5. GLUCOSE [Concomitant]
     Route: 042
  6. SEVOFLURANE [Concomitant]
     Route: 055

REACTIONS (9)
  - INJECTION SITE REACTION [None]
  - MEDICATION ERROR [None]
  - MUSCULOSKELETAL STIFFNESS [None]
  - OEDEMA [None]
  - OEDEMA PERIPHERAL [None]
  - PAIN [None]
  - PAIN IN EXTREMITY [None]
  - RASH ERYTHEMATOUS [None]
  - SKIN DISCOLOURATION [None]
